FAERS Safety Report 14497903 (Version 3)
Quarter: 2018Q3

REPORT INFORMATION
  Report Type: Spontaneous
  Country: JP (occurrence: JP)
  Receive Date: 20180207
  Receipt Date: 20180712
  Transmission Date: 20181010
  Serious: Yes (Hospitalization, Other)
  Sender: FDA-Public Use
  Company Number: JP-TAKEDA-2018TJP003060

PATIENT
  Age: 43 Year
  Sex: Male

DRUGS (9)
  1. HEPARIN SODIUM. [Concomitant]
     Active Substance: HEPARIN SODIUM
     Indication: ACUTE MYOCARDIAL INFARCTION
     Dosage: 30 IU, QD
     Route: 041
     Dates: start: 20150411, end: 20150413
  2. CANDESARTAN ^ASKA^ [Suspect]
     Active Substance: CANDESARTAN CILEXETIL
     Indication: HYPERTENSION
     Dosage: 4 MG, UNK
     Route: 048
     Dates: start: 20150411, end: 20150413
  3. CRESTOR [Suspect]
     Active Substance: ROSUVASTATIN CALCIUM
     Indication: DYSLIPIDAEMIA
     Dosage: 2.5 MG, UNK
     Route: 048
     Dates: start: 20150411, end: 20150413
  4. MILLIS [Concomitant]
     Indication: ACUTE MYOCARDIAL INFARCTION
     Dosage: 10 MG, QD
     Route: 062
     Dates: start: 20150411, end: 20150415
  5. LANSOPRAZOLE. [Suspect]
     Active Substance: LANSOPRAZOLE
     Indication: GASTROINTESTINAL DISORDER
     Dosage: 30 MG, UNK
     Route: 048
     Dates: start: 20150411, end: 20150413
  6. EFIENT [Concomitant]
     Active Substance: PRASUGREL HYDROCHLORIDE
     Indication: ACUTE MYOCARDIAL INFARCTION
     Dosage: 3.75 MG, QD
     Route: 048
     Dates: start: 20150411
  7. NICORANDIL [Concomitant]
     Active Substance: NICORANDIL
     Indication: ACUTE MYOCARDIAL INFARCTION
     Dosage: 48 MG, QD
     Route: 041
     Dates: start: 20150411, end: 20150413
  8. BAYASPIRIN [Concomitant]
     Active Substance: ASPIRIN
     Indication: ACUTE MYOCARDIAL INFARCTION
     Dosage: 100 MG, QD
     Route: 048
     Dates: start: 20150411
  9. MAGMITT [Concomitant]
     Active Substance: MAGNESIUM OXIDE
     Indication: DEFAECATION DISORDER
     Dosage: 990 MG, QD
     Route: 048
     Dates: start: 20150411, end: 20150415

REACTIONS (1)
  - Rhabdomyolysis [Recovered/Resolved]

NARRATIVE: CASE EVENT DATE: 20150413
